FAERS Safety Report 21878077 (Version 1)
Quarter: 2023Q1

REPORT INFORMATION
  Report Type: Spontaneous
  Country: US (occurrence: US)
  Receive Date: 20230118
  Receipt Date: 20230118
  Transmission Date: 20230418
  Serious: No
  Sender: FDA-Public Use
  Company Number: US-BEH-2023154134

PATIENT
  Age: 52 Year
  Sex: Female

DRUGS (54)
  1. HIZENTRA [Suspect]
     Active Substance: HUMAN IMMUNOGLOBULIN G
     Indication: Immunodeficiency common variable
     Dosage: 14 GRAM, QW
     Route: 058
     Dates: start: 20200221
  2. ALBUTEROL SULFATE [Concomitant]
     Active Substance: ALBUTEROL SULFATE
  3. ALBUTEROL [Concomitant]
     Active Substance: ALBUTEROL
  4. ALBUTEROL [Concomitant]
     Active Substance: ALBUTEROL
  5. ALENDRONATE [Concomitant]
     Active Substance: ALENDRONATE SODIUM
  6. ATORVASTATIN [Concomitant]
     Active Substance: ATORVASTATIN
  7. CIMETIDINE [Concomitant]
     Active Substance: CIMETIDINE
  8. CYCLOBENZAPRINE [Concomitant]
     Active Substance: CYCLOBENZAPRINE
  9. DICLOFENAC [Concomitant]
     Active Substance: DICLOFENAC
  10. DOCUSATE SOD [Concomitant]
  11. DOXAZOSIN [Concomitant]
     Active Substance: DOXAZOSIN MESYLATE
  12. DULOXETINE [Concomitant]
     Active Substance: DULOXETINE
  13. EPINEPHRINE [Concomitant]
     Active Substance: EPINEPHRINE
  14. FLUTICASONE [Concomitant]
     Active Substance: FLUTICASONE
  15. GABAPENTIN [Concomitant]
     Active Substance: GABAPENTIN
  16. ACETAMINOPHEN\HYDROCODONE [Concomitant]
     Active Substance: ACETAMINOPHEN\HYDROCODONE
  17. HYDROCORTISONE ACETATE [Concomitant]
     Active Substance: HYDROCORTISONE ACETATE
  18. HYDROXYZINE HYDROCHLORIDE [Concomitant]
     Active Substance: HYDROXYZINE HYDROCHLORIDE
  19. IBUPROFEN [Concomitant]
     Active Substance: IBUPROFEN
     Dosage: 800 MILLIGRAM
  20. KEPPRA [Concomitant]
     Active Substance: LEVETIRACETAM
  21. KLOR-CON [Concomitant]
     Active Substance: POTASSIUM CHLORIDE
  22. LASIX [Concomitant]
     Active Substance: FUROSEMIDE
  23. LATUDA [Concomitant]
     Active Substance: LURASIDONE HYDROCHLORIDE
  24. LEVETIRACETAM [Concomitant]
     Active Substance: LEVETIRACETAM
  25. LORATADINE [Concomitant]
     Active Substance: LORATADINE
  26. MEDROXYPROGEST [Concomitant]
  27. METHOCARBAMOL [Concomitant]
     Active Substance: METHOCARBAMOL
  28. MUCINEX [Concomitant]
     Active Substance: GUAIFENESIN
  29. VITAMINS NOS [Concomitant]
     Active Substance: VITAMINS
  30. NAPROXEN [Concomitant]
     Active Substance: NAPROXEN
  31. OMEPRAZOLE [Concomitant]
     Active Substance: OMEPRAZOLE
  32. OYSTER SHELL [Concomitant]
     Active Substance: OSTREA EDULIS SHELL
  33. POLYETHYLENE GLYCOLS [Concomitant]
     Active Substance: POLYETHYLENE GLYCOLS
  34. POTASSIUM CHLORIDE [Concomitant]
     Active Substance: POTASSIUM CHLORIDE
  35. PRAZOSIN HYDROCHLORIDE [Concomitant]
     Active Substance: PRAZOSIN HYDROCHLORIDE
  36. PREDNISONE [Concomitant]
     Active Substance: PREDNISONE
  37. PROMETHAZINE [Concomitant]
     Active Substance: PROMETHAZINE HYDROCHLORIDE
  38. QVAR REDIHALER [Concomitant]
     Active Substance: BECLOMETHASONE DIPROPIONATE
  39. RANITIDINE [Concomitant]
     Active Substance: RANITIDINE
  40. SUMATRIPTAN [Concomitant]
     Active Substance: SUMATRIPTAN
  41. SUPREP BOWEL PREP [Concomitant]
     Active Substance: MAGNESIUM SULFATE\POTASSIUM SULFATE\SODIUM SULFATE
  42. TRAZODONE [Concomitant]
     Active Substance: TRAZODONE HYDROCHLORIDE
  43. VITAMIN D NOS [Concomitant]
     Active Substance: VITAMIN D NOS
  44. ZOFRAN [Concomitant]
     Active Substance: ONDANSETRON HYDROCHLORIDE
  45. ALENDRONATE [Concomitant]
     Active Substance: ALENDRONATE SODIUM
  46. ATORVASTATIN [Concomitant]
     Active Substance: ATORVASTATIN
  47. DULOXETINE [Concomitant]
     Active Substance: DULOXETINE
  48. GABAPENTIN [Concomitant]
     Active Substance: GABAPENTIN
  49. IBUPROFEN [Concomitant]
     Active Substance: IBUPROFEN
  50. LATUDA [Concomitant]
     Active Substance: LURASIDONE HYDROCHLORIDE
  51. PRAZOSIN HYDROCHLORIDE [Concomitant]
     Active Substance: PRAZOSIN HYDROCHLORIDE
  52. PREDNISONE [Concomitant]
     Active Substance: PREDNISONE
  53. TRAZODONE [Concomitant]
     Active Substance: TRAZODONE HYDROCHLORIDE
  54. VITAMIN D NOS [Concomitant]
     Active Substance: VITAMIN D NOS

REACTIONS (1)
  - Nausea [Not Recovered/Not Resolved]

NARRATIVE: CASE EVENT DATE: 20221003
